FAERS Safety Report 10467881 (Version 2)
Quarter: 2014Q4

REPORT INFORMATION
  Report Type: Report from Study
  Country: BR (occurrence: BR)
  Receive Date: 20140922
  Receipt Date: 20141007
  Transmission Date: 20150528
  Serious: Yes (Other)
  Sender: FDA-Public Use
  Company Number: PHHY2014BR123137

PATIENT
  Age: 57 Year
  Sex: Female

DRUGS (3)
  1. CLORIDRATO DE PROPRANOLOL [Suspect]
     Active Substance: PROPRANOLOL HYDROCHLORIDE
     Indication: HYPERTENSION
     Dosage: 2 DF, UNK
     Route: 048
  2. DIOVAN HCT [Suspect]
     Active Substance: HYDROCHLOROTHIAZIDE\VALSARTAN
     Indication: HYPERTENSION
     Dosage: 1 DF, PER DAY
     Route: 048
  3. LEVOID [Suspect]
     Active Substance: LEVOTHYROXINE
     Indication: HORMONE REPLACEMENT THERAPY
     Dosage: 125 MG, UNK
     Route: 048

REACTIONS (4)
  - Pain [Recovering/Resolving]
  - Fall [Recovering/Resolving]
  - Upper limb fracture [Recovering/Resolving]
  - Wrist fracture [Recovering/Resolving]

NARRATIVE: CASE EVENT DATE: 20140716
